FAERS Safety Report 6961823-8 (Version None)
Quarter: 2010Q3

REPORT INFORMATION
  Report Type: 
  Country: None (occurrence: None)
  Receive Date: 20100901
  Receipt Date: 20100712
  Transmission Date: 20110219
  Serious: Yes (Hospitalization, Other)
  Sender: FDA-Public Use
  Company Number: PHHY2010US56136

PATIENT
  Sex: Female

DRUGS (2)
  1. GLEEVEC [Suspect]
     Indication: CHRONIC MYELOID LEUKAEMIA
     Dosage: 400 MG, QD
     Route: 048
     Dates: start: 20080320
  2. PROCRIT [Concomitant]
     Dosage: 40000 UNITS EVERY OTHER WEEK

REACTIONS (3)
  - FALL [None]
  - HIP FRACTURE [None]
  - MALAISE [None]
